FAERS Safety Report 8534579-5 (Version None)
Quarter: 2012Q3

REPORT INFORMATION
  Report Type: 
  Country: None (occurrence: None)
  Receive Date: 20120724
  Receipt Date: 20120710
  Transmission Date: 20120928
  Serious: No
  Sender: FDA-Public Use
  Company Number: US-ASTRAZENECA-2012SE47764

PATIENT
  Age: 51 Year
  Sex: Female

DRUGS (2)
  1. NEXIUM [Suspect]
     Route: 048
  2. MEDICATION FOR DIABETES [Concomitant]
     Indication: DIABETES MELLITUS

REACTIONS (4)
  - HYPERTENSION [None]
  - BLOOD CHOLESTEROL INCREASED [None]
  - MIGRAINE [None]
  - HEADACHE [None]
